FAERS Safety Report 20624615 (Version 2)
Quarter: 2022Q3

REPORT INFORMATION
  Report Type: Spontaneous
  Country: US (occurrence: US)
  Receive Date: 20220322
  Receipt Date: 20220712
  Transmission Date: 20221027
  Serious: Yes (Other)
  Sender: FDA-Public Use
  Company Number: US-SA-SAC20220317001192

PATIENT
  Age: 66 Year
  Sex: Female

DRUGS (1)
  1. ZANTAC [Suspect]
     Active Substance: RANITIDINE HYDROCHLORIDE
     Dosage: 150 MG, QD
     Dates: start: 199401, end: 201603

REACTIONS (5)
  - Hepatic cancer stage IV [Unknown]
  - Lung carcinoma cell type unspecified stage IV [Unknown]
  - Pancreatic carcinoma stage IV [Unknown]
  - Gastric cancer stage IV [Unknown]
  - Brain neoplasm malignant [Unknown]

NARRATIVE: CASE EVENT DATE: 20160301
